FAERS Safety Report 11334347 (Version 1)
Quarter: 2015Q3

REPORT INFORMATION
  Report Type: Spontaneous
  Country: FR (occurrence: FR)
  Receive Date: 20150804
  Receipt Date: 20150804
  Transmission Date: 20151125
  Serious: Yes (Hospitalization, Other)
  Sender: FDA-Public Use
  Company Number: FR-BRISTOL-MYERS SQUIBB COMPANY-BMS-2015-049709

PATIENT
  Age: 84 Year
  Sex: Female

DRUGS (4)
  1. COUMADINE [Suspect]
     Active Substance: WARFARIN SODIUM
     Indication: PRODUCT USED FOR UNKNOWN INDICATION
     Dosage: 3 MG, QD
     Route: 048
  2. COUMADINE [Suspect]
     Active Substance: WARFARIN SODIUM
     Dosage: 1.5 DF, QD
     Route: 048
     Dates: start: 20150116
  3. VITAMIN K [Concomitant]
     Active Substance: PHYTONADIONE
     Indication: PRODUCT USED FOR UNKNOWN INDICATION
     Route: 065
  4. KANOKAD [Concomitant]
     Active Substance: COAGULATION FACTOR VII HUMAN\COAGULATION FACTOR X HUMAN\FACTOR IX COMPLEX\PROTHROMBIN
     Indication: PRODUCT USED FOR UNKNOWN INDICATION
     Dosage: 500 IU, UNK
     Route: 065

REACTIONS (2)
  - Craniocerebral injury [Unknown]
  - Cerebral haemorrhage [Recovered/Resolved]

NARRATIVE: CASE EVENT DATE: 20150104
